FAERS Safety Report 5001019-2 (Version None)
Quarter: 2006Q2

REPORT INFORMATION
  Report Type: 
  Country: None (occurrence: None)
  Receive Date: 20060512
  Receipt Date: 20060509
  Transmission Date: 20061013
  Serious: Yes (Life-Threatening)
  Sender: FDA-Public Use
  Company Number: MX-GLAXOSMITHKLINE-A0605140A

PATIENT
  Age: 30 Year
  Sex: Female

DRUGS (4)
  1. AROPAX [Suspect]
     Indication: DEPRESSION
     Dosage: 20MG UNKNOWN
     Route: 048
     Dates: start: 20060408
  2. LEXAPRO [Concomitant]
     Dates: start: 20050701
  3. REMERON [Concomitant]
  4. RIVOTRIL [Concomitant]
     Dosage: 5MG PER DAY
     Route: 048

REACTIONS (3)
  - ACNE [None]
  - DRUG INEFFECTIVE [None]
  - SUICIDAL IDEATION [None]
